FAERS Safety Report 19018454 (Version 3)
Quarter: 2021Q3

REPORT INFORMATION
  Report Type: Report from Study
  Country: US (occurrence: US)
  Receive Date: 20210317
  Receipt Date: 20210827
  Transmission Date: 20211014
  Serious: No
  Sender: FDA-Public Use
  Company Number: NVSC2021US052011

PATIENT
  Sex: Female

DRUGS (2)
  1. GILENYA [Suspect]
     Active Substance: FINGOLIMOD HYDROCHLORIDE
     Indication: PRODUCT USED FOR UNKNOWN INDICATION
     Dosage: UNK
     Route: 065
  2. KESIMPTA [Suspect]
     Active Substance: OFATUMUMAB
     Indication: PRODUCT USED FOR UNKNOWN INDICATION
     Dosage: UNK
     Route: 065

REACTIONS (11)
  - Malaise [Unknown]
  - Back pain [Unknown]
  - Viral infection [Unknown]
  - Nausea [Unknown]
  - Pain [Unknown]
  - Neck pain [Unknown]
  - Drug ineffective [Unknown]
  - Hypertension [Unknown]
  - Insomnia [Unknown]
  - Blood cholesterol increased [Unknown]
  - Musculoskeletal stiffness [Unknown]
